FAERS Safety Report 15591850 (Version 3)
Quarter: 2018Q4

REPORT INFORMATION
  Report Type: Spontaneous
  Country: US (occurrence: US)
  Receive Date: 20181106
  Receipt Date: 20181114
  Transmission Date: 20190205
  Serious: No
  Sender: FDA-Public Use
  Company Number: US-PFIZER INC-2018442143

PATIENT
  Sex: Female

DRUGS (5)
  1. GLIPIZIDE XL [Suspect]
     Active Substance: GLIPIZIDE
     Dosage: 10 MG, 2X/DAY
  2. GLIPIZIDE XL [Suspect]
     Active Substance: GLIPIZIDE
     Dosage: FROM 5 MG TO 10 MG
  3. GLIPIZIDE XL [Suspect]
     Active Substance: GLIPIZIDE
     Dosage: 20 MG, W/HEAVY MEAL: 4 TABLETS OF 5 MG; W/ LITTLE AMOUNT, SHE TAKES HALF OF IT
  4. GLIPIZIDE XL [Suspect]
     Active Substance: GLIPIZIDE
     Dosage: 2.5 MG TO 5 MG DEPENDING ON HOW MUCH SHE ATE (HEAVY MEAL 5MG; LIGHT MEAL HALF OF 5MG)
  5. INSULIN [Suspect]
     Active Substance: INSULIN NOS
     Dosage: UNK

REACTIONS (3)
  - Intentional product misuse [Unknown]
  - Blood glucose decreased [Unknown]
  - Blood glucose increased [Unknown]
